FAERS Safety Report 21293783 (Version 1)
Quarter: 2022Q3

REPORT INFORMATION
  Report Type: Spontaneous
  Country: FR (occurrence: FR)
  Receive Date: 20220905
  Receipt Date: 20220905
  Transmission Date: 20221026
  Serious: Yes (Death, Hospitalization, Other)
  Sender: FDA-Public Use
  Company Number: FR-AMGEN-FRASP2022150995

PATIENT

DRUGS (6)
  1. BLINATUMOMAB [Suspect]
     Active Substance: BLINATUMOMAB
     Indication: Acute lymphocytic leukaemia
     Dosage: UNK
     Route: 065
  2. CYCLOPHOSPHAMIDE [Concomitant]
     Active Substance: CYCLOPHOSPHAMIDE
     Dosage: UNK
  3. FLUDARABINE [Concomitant]
     Active Substance: FLUDARABINE PHOSPHATE
     Dosage: UNK
  4. AXICABTAGENE CILOLEUCEL [Concomitant]
     Active Substance: AXICABTAGENE CILOLEUCEL
     Dosage: UNK
  5. TISAGENLECLEUCEL [Concomitant]
     Active Substance: TISAGENLECLEUCEL
     Dosage: UNK
  6. BREXUCABTAGENE AUTOLEUCEL [Concomitant]
     Active Substance: BREXUCABTAGENE AUTOLEUCEL
     Dosage: UNK

REACTIONS (6)
  - Death [Fatal]
  - Cardiac failure [Unknown]
  - Nervous system disorder [Unknown]
  - Respiratory failure [Unknown]
  - Pyrexia [Unknown]
  - Neutropenia [Unknown]
